FAERS Safety Report 5989925-3 (Version None)
Quarter: 2008Q4

REPORT INFORMATION
  Report Type: 
  Country: None (occurrence: None)
  Receive Date: 20081210
  Receipt Date: 20081111
  Transmission Date: 20090506
  Serious: Yes (Other)
  Sender: FDA-Public Use
  Company Number: 6045795

PATIENT
  Age: 49 Year

DRUGS (2)
  1. LEVOTHYROXINE SODIUM [Suspect]
     Indication: HYPOTHYROIDISM
     Dosage: 250-1500 MICROG/D (5 IN 1 WK) 1500-2100 MICROG/D
     Route: 048
  2. RADIOIODINE THERAPY [Concomitant]

REACTIONS (2)
  - DRUG RESISTANCE [None]
  - MALABSORPTION [None]
